FAERS Safety Report 22095790 (Version 1)
Quarter: 2023Q1

REPORT INFORMATION
  Report Type: Spontaneous
  Country: US (occurrence: US)
  Receive Date: 20230314
  Receipt Date: 20230314
  Transmission Date: 20230417
  Serious: No
  Sender: FDA-Public Use
  Company Number: US-ELI_LILLY_AND_COMPANY-US202303006506

PATIENT
  Sex: Female
  Weight: 54 kg

DRUGS (2)
  1. RETEVMO [Suspect]
     Active Substance: SELPERCATINIB
     Indication: Lung neoplasm malignant
     Dosage: 40 MG, OTHER (6 TIMES DAILY)
     Route: 065
  2. RETEVMO [Suspect]
     Active Substance: SELPERCATINIB
     Dosage: 40 MG, OTHER (8 TIMES DAILY)
     Route: 065
     Dates: start: 202212

REACTIONS (3)
  - Prescribed overdose [Unknown]
  - Product prescribing error [Unknown]
  - Asthenia [Unknown]
